FAERS Safety Report 15992506 (Version 2)
Quarter: 2019Q1

REPORT INFORMATION
  Report Type: Spontaneous
  Country: BE (occurrence: BE)
  Receive Date: 20190221
  Receipt Date: 20190312
  Transmission Date: 20190418
  Serious: Yes (Hospitalization, Other)
  Sender: FDA-Public Use
  Company Number: BE-ELI_LILLY_AND_COMPANY-BE201902006914

PATIENT
  Age: 70 Year
  Sex: Female
  Weight: 53 kg

DRUGS (6)
  1. OLUMIANT [Suspect]
     Active Substance: BARICITINIB
     Indication: RHEUMATOID ARTHRITIS
     Dosage: 4 MG, DAILY
     Route: 048
     Dates: start: 20180830, end: 20180925
  2. ARAVA [Concomitant]
     Active Substance: LEFLUNOMIDE
     Indication: RHEUMATOID ARTHRITIS
     Dosage: 20 MG, DAILY
     Route: 048
  3. DOLCIDIUM [INDOMETACIN] [Concomitant]
     Indication: PAIN
  4. ASAFLOW [Concomitant]
     Active Substance: ASPIRIN
     Indication: CARDIOVASCULAR EVENT PROPHYLAXIS
     Dosage: 80 MG, DAILY
     Route: 048
  5. DOLCIDIUM [INDOMETACIN] [Concomitant]
     Indication: RHEUMATOID ARTHRITIS
     Dosage: 100 MG, DAILY
     Route: 054
     Dates: start: 2004, end: 20180927
  6. PREDNISOLONE. [Concomitant]
     Active Substance: PREDNISOLONE
     Indication: RHEUMATOID ARTHRITIS
     Dosage: 6 MG, DAILY
     Route: 048
     Dates: start: 2004

REACTIONS (4)
  - Large intestine perforation [Recovered/Resolved with Sequelae]
  - Sepsis [Recovered/Resolved]
  - Peritonitis [Recovered/Resolved]
  - Diverticulitis [Recovered/Resolved]

NARRATIVE: CASE EVENT DATE: 20180920
